FAERS Safety Report 17435155 (Version 1)
Quarter: 2020Q1

REPORT INFORMATION
  Report Type: Spontaneous
  Country: US (occurrence: US)
  Receive Date: 20200218
  Receipt Date: 20200218
  Transmission Date: 20200409
  Serious: No
  Sender: FDA-Public Use
  Company Number: None

PATIENT
  Age: 41 Year
  Sex: Female
  Weight: 64.35 kg

DRUGS (5)
  1. EMGALITY [Suspect]
     Active Substance: GALCANEZUMAB-GNLM
     Indication: MIGRAINE
     Dosage: ?          QUANTITY:1 INJECTION(S);OTHER FREQUENCY:EVERY 28 DAYS;OTHER ROUTE:INJECTED IN THE STOMACH?
     Dates: start: 20190418, end: 20200130
  2. BOTOX [Concomitant]
     Active Substance: ONABOTULINUMTOXINA
  3. SEASONIQUE [Concomitant]
     Active Substance: ETHINYL ESTRADIOL\LEVONORGESTREL
  4. SEYSARA [Concomitant]
     Active Substance: SARECYCLINE HYDROCHLORIDE
  5. SYNTHROID [Concomitant]
     Active Substance: LEVOTHYROXINE SODIUM

REACTIONS (2)
  - Insomnia [None]
  - Fatigue [None]

NARRATIVE: CASE EVENT DATE: 20200114
